FAERS Safety Report 10651987 (Version 1)
Quarter: 2014Q4

REPORT INFORMATION
  Report Type: Report from Study
  Country: US (occurrence: US)
  Receive Date: 20141215
  Receipt Date: 20141215
  Transmission Date: 20150529
  Serious: Yes (Other)
  Sender: FDA-Public Use
  Company Number: US-BAYER-2014-183859

PATIENT
  Sex: Female

DRUGS (1)
  1. MIRENA [Suspect]
     Active Substance: LEVONORGESTREL
     Indication: CONTRACEPTION
     Dosage: 20 MCG/24HR, CONT
     Route: 015
     Dates: start: 201303

REACTIONS (11)
  - Pregnancy with contraceptive device [Recovered/Resolved]
  - Drug ineffective [None]
  - Device difficult to use [None]
  - Intentional medical device removal by patient [None]
  - Bladder disorder [None]
  - Ovarian disorder [None]
  - Uterine perforation [None]
  - Genital haemorrhage [None]
  - Procedural pain [None]
  - Pain [None]
  - Suppressed lactation [None]

NARRATIVE: CASE EVENT DATE: 201303
